FAERS Safety Report 4340102-1 (Version None)
Quarter: 2004Q2

REPORT INFORMATION
  Report Type: 
  Country: None (occurrence: None)
  Receive Date: 20040416
  Receipt Date: 20040204
  Transmission Date: 20050107
  Serious: Yes (Other)
  Sender: FDA-Public Use
  Company Number: US-BRISTOL-MYERS SQUIBB COMPANY-12497202

PATIENT
  Age: 72 Year
  Sex: Male

DRUGS (10)
  1. CETUXIMAB [Suspect]
     Indication: COLORECTAL CANCER
     Dosage: LOADING DOSE/ 460 MG WEEKLY DOSE
     Route: 042
     Dates: start: 20041224, end: 20040226
  2. PROSCAR [Concomitant]
  3. PREVACID [Concomitant]
  4. WARFARIN SODIUM [Concomitant]
  5. GLUCOTROL [Concomitant]
  6. DOXYCYCLINE [Concomitant]
     Dates: start: 20040105, end: 20040112
  7. MINOCYCLINE HCL [Concomitant]
     Dates: start: 20040120, end: 20040127
  8. EMOLLIENT [Concomitant]
     Dates: start: 20040128
  9. AMLACTIN [Concomitant]
     Dates: start: 20040120
  10. BENADRYL [Concomitant]
     Dates: start: 20041224, end: 20040224

REACTIONS (1)
  - VENTRICULAR EXTRASYSTOLES [None]
